FAERS Safety Report 5392047-6 (Version None)
Quarter: 2007Q3

REPORT INFORMATION
  Report Type: 
  Country: None (occurrence: None)
  Receive Date: 20070720
  Receipt Date: 20070712
  Transmission Date: 20080115
  Serious: Yes (Other)
  Sender: FDA-Public Use
  Company Number: GBWYE822014JUN04

PATIENT
  Sex: Female
  Weight: 63.8 kg

DRUGS (9)
  1. RAPAMUNE [Suspect]
     Indication: RENAL TRANSPLANT
     Dosage: 3MG DAILY
     Route: 048
     Dates: start: 20040324
  2. RAPAMUNE [Suspect]
     Indication: IMMUNOSUPPRESSANT DRUG THERAPY
  3. RAPAMUNE [Suspect]
     Indication: BLOOD CREATININE INCREASED
  4. PERINDOPRIL [Concomitant]
     Dosage: 2MG DAILY
     Route: 048
     Dates: start: 20040324
  5. PREDNISOLONE [Concomitant]
     Dosage: 7.5MG DAILY
     Route: 048
  6. ATENOLOL [Concomitant]
     Dosage: 100MG DAILY
     Route: 048
  7. RANITIDINE HCL [Concomitant]
     Dosage: 150MG DAILY
     Route: 048
  8. MYCOPHENOLATE MOFETIL [Concomitant]
     Dosage: 2G DAILY
     Route: 048
  9. AMLODIPINE [Concomitant]
     Dosage: 10MG DAILY
     Route: 048

REACTIONS (1)
  - MENSTRUATION IRREGULAR [None]
